FAERS Safety Report 7646325-8 (Version None)
Quarter: 2011Q3

REPORT INFORMATION
  Report Type: 
  Country: None (occurrence: None)
  Receive Date: 20110725
  Receipt Date: 20110707
  Transmission Date: 20111222
  Serious: Yes (Hospitalization)
  Sender: FDA-Public Use
  Company Number: DSA_47137_2011

PATIENT
  Age: 81 Year
  Sex: Male

DRUGS (7)
  1. ENALAPRIL MALEATE [Suspect]
     Indication: ESSENTIAL HYPERTENSION
     Dosage: (DF ORAL)
     Route: 048
     Dates: end: 20110413
  2. BISOPROLOL FUMARATE [Concomitant]
  3. ASPIRIN [Concomitant]
  4. BEHEPAN [Concomitant]
  5. FOLACIN /00024201/ [Concomitant]
  6. FUROSEMIDE [Concomitant]
  7. DUROFERON [Concomitant]

REACTIONS (2)
  - CARDIOMYOPATHY [None]
  - RENAL FAILURE ACUTE [None]
